FAERS Safety Report 25184975 (Version 1)
Quarter: 2025Q2

REPORT INFORMATION
  Report Type: Spontaneous
  Country: US (occurrence: US)
  Receive Date: 20250410
  Receipt Date: 20250410
  Transmission Date: 20250717
  Serious: Yes (Death, Other)
  Sender: AMGEN
  Company Number: US-AMGEN-USASP2025068262

PATIENT

DRUGS (9)
  1. CARFILZOMIB [Suspect]
     Active Substance: CARFILZOMIB
     Indication: Plasma cell myeloma refractory
     Route: 065
  2. DEXAMETHASONE [Suspect]
     Active Substance: DEXAMETHASONE
     Indication: Plasma cell myeloma refractory
     Route: 065
  3. PANOBINOSTAT [Suspect]
     Active Substance: PANOBINOSTAT
     Indication: Plasma cell myeloma refractory
     Route: 065
  4. CYTOXAN [Suspect]
     Active Substance: CYCLOPHOSPHAMIDE
     Indication: Plasma cell myeloma refractory
     Route: 065
  5. ELOTUZUMAB [Concomitant]
     Active Substance: ELOTUZUMAB
     Indication: Plasma cell myeloma refractory
     Route: 065
  6. LENALIDOMIDE [Concomitant]
     Active Substance: LENALIDOMIDE
     Indication: Plasma cell myeloma refractory
     Route: 065
  7. DARATUMUMAB [Concomitant]
     Active Substance: DARATUMUMAB
     Indication: Plasma cell myeloma refractory
     Route: 065
  8. POMALIDOMIDE [Concomitant]
     Active Substance: POMALIDOMIDE
     Indication: Plasma cell myeloma refractory
  9. BENDAMUSTINE [Concomitant]
     Active Substance: BENDAMUSTINE
     Indication: Plasma cell myeloma refractory
     Route: 065

REACTIONS (2)
  - Plasma cell myeloma [Fatal]
  - Off label use [Unknown]
